FAERS Safety Report 7604442-2 (Version None)
Quarter: 2011Q3

REPORT INFORMATION
  Report Type: 
  Country: None (occurrence: None)
  Receive Date: 20110712
  Receipt Date: 20110707
  Transmission Date: 20111222
  Serious: Yes (Hospitalization)
  Sender: FDA-Public Use
  Company Number: TW-PFIZER INC-2011147352

PATIENT
  Age: 59 Year
  Sex: Female

DRUGS (2)
  1. NORVASC [Suspect]
     Indication: CARDIAC DISORDER
     Dosage: UNK
  2. CRESTOR [Suspect]
     Indication: CARDIAC DISORDER
     Dosage: UNK

REACTIONS (2)
  - HYPOTENSION [None]
  - ALTERED STATE OF CONSCIOUSNESS [None]
